FAERS Safety Report 6905263-6 (Version None)
Quarter: 2010Q3

REPORT INFORMATION
  Report Type: 
  Country: None (occurrence: None)
  Receive Date: 20100802
  Receipt Date: 20100721
  Transmission Date: 20110219
  Serious: Yes (Hospitalization)
  Sender: FDA-Public Use
  Company Number: 7011819

PATIENT
  Age: 45 Year
  Sex: Female

DRUGS (1)
  1. REBIF [Suspect]
     Indication: MULTIPLE SCLEROSIS
     Dosage: 44 MCG, 3 IN 1 WK, SUBCUTANEOUS
     Route: 058
     Dates: start: 20080919

REACTIONS (6)
  - DEPRESSION [None]
  - DIARRHOEA [None]
  - IMPRISONMENT [None]
  - LOSS OF EMPLOYMENT [None]
  - MARITAL PROBLEM [None]
  - VOMITING [None]
